FAERS Safety Report 13550665 (Version 1)
Quarter: 2017Q2

REPORT INFORMATION
  Report Type: Report from Study
  Country: US (occurrence: US)
  Receive Date: 20170516
  Receipt Date: 20170516
  Transmission Date: 20170830
  Serious: Yes (Other)
  Sender: FDA-Public Use
  Company Number: US-PFIZER INC-2017200941

PATIENT
  Age: 6 Month
  Sex: Male

DRUGS (1)
  1. FOSPHENYTOIN SODIUM. [Suspect]
     Active Substance: FOSPHENYTOIN SODIUM
     Dosage: UNK, (DOSE PHENYTOIN EQUIVALENTS 900)

REACTIONS (2)
  - Overdose [Unknown]
  - Cardiac arrest [Recovered/Resolved]
